FAERS Safety Report 20672981 (Version 1)
Quarter: 2022Q2

REPORT INFORMATION
  Report Type: Spontaneous
  Country: US (occurrence: None)
  Receive Date: 20220403
  Receipt Date: 20220403
  Transmission Date: 20220721
  Serious: No
  Sender: FDA-Public Use
  Company Number: None

PATIENT
  Age: 82 Year
  Sex: Male
  Weight: 92 kg

DRUGS (1)
  1. TECHNETIUM TC-99M [Suspect]
     Active Substance: TECHNETIUM TC-99M
     Indication: Cardiac stress test
     Dates: start: 20220323, end: 20220323

REACTIONS (3)
  - Angioedema [None]
  - Urticaria [None]
  - Pruritus [None]

NARRATIVE: CASE EVENT DATE: 20220324
